FAERS Safety Report 7771409-3 (Version None)
Quarter: 2011Q3

REPORT INFORMATION
  Report Type: 
  Country: None (occurrence: None)
  Receive Date: 20110922
  Receipt Date: 20110720
  Transmission Date: 20111222
  Serious: Yes (Hospitalization, Other)
  Sender: FDA-Public Use
  Company Number: US-ASTRAZENECA-2009UW13191

PATIENT
  Age: 52 Year
  Sex: Female
  Weight: 72.6 kg

DRUGS (9)
  1. ABILIFY [Concomitant]
     Dosage: 10-30 MG
     Dates: start: 20050101, end: 20060101
  2. ZOLOFT [Concomitant]
     Dosage: 50-100 MG
     Dates: start: 20050101, end: 20060101
  3. MIRTAZAPINE [Concomitant]
     Dates: start: 20030101
  4. PROTONIX [Concomitant]
     Dates: start: 20041016
  5. SEROQUEL [Suspect]
     Dosage: 50 MG TO 100 MG
     Route: 048
     Dates: start: 20041016
  6. HALDOL [Concomitant]
     Dosage: 1-2 MG
     Dates: start: 20040101
  7. RISPERDAL [Concomitant]
     Dosage: 2-4 MG
     Dates: start: 20030101, end: 20040101
  8. SEROQUEL [Suspect]
     Indication: SCHIZOPHRENIA
     Dosage: 25-200MG
     Route: 048
     Dates: start: 20040701, end: 20040901
  9. ZOLOFT [Concomitant]
     Dates: start: 20041016

REACTIONS (3)
  - TYPE 2 DIABETES MELLITUS [None]
  - DIABETIC KETOACIDOSIS [None]
  - DIABETIC COMA [None]
